FAERS Safety Report 4460405-X (Version None)
Quarter: 2004Q3

REPORT INFORMATION
  Report Type: 
  Country: None (occurrence: None)
  Receive Date: 20040928
  Receipt Date: 20040525
  Transmission Date: 20050211
  Serious: No
  Sender: FDA-Public Use
  Company Number: US-GLAXOSMITHKLINE-A0512068A

PATIENT
  Age: 57 Year
  Sex: Male

DRUGS (2)
  1. SEREVENT [Suspect]
     Indication: ILL-DEFINED DISORDER
     Route: 055
     Dates: start: 20040401, end: 20040501
  2. VENTOLIN [Concomitant]

REACTIONS (1)
  - DRUG INEFFECTIVE [None]
